FAERS Safety Report 5130517-6 (Version None)
Quarter: 2006Q4

REPORT INFORMATION
  Report Type: 
  Country: None (occurrence: None)
  Receive Date: 20061019
  Receipt Date: 20061016
  Transmission Date: 20070319
  Serious: Yes (Other)
  Sender: FDA-Public Use
  Company Number: NL-GLAXOSMITHKLINE-B0442815A

PATIENT
  Age: 79 Year
  Sex: Male

DRUGS (1)
  1. AMOXICILLIN + CLAVULANATE POTASSIUM [Suspect]
     Indication: URINARY TRACT INFECTION
     Dosage: 500MG THREE TIMES PER DAY
     Route: 065
     Dates: start: 20060817

REACTIONS (1)
  - HEPATITIS CHOLESTATIC [None]
